FAERS Safety Report 8237827-4 (Version None)
Quarter: 2012Q1

REPORT INFORMATION
  Report Type: 
  Country: None (occurrence: None)
  Receive Date: 20120326
  Receipt Date: 20120313
  Transmission Date: 20120608
  Serious: Yes (Hospitalization)
  Sender: FDA-Public Use
  Company Number: 201004015

PATIENT
  Age: 70 Year
  Sex: Female
  Weight: 54.4316 kg

DRUGS (6)
  1. ANESTHETICS, LOCAL (ANESTHETICS, LOCAL) [Concomitant]
  2. XIAFLEX [Suspect]
     Indication: DUPUYTREN'S CONTRACTURE
     Dosage: INTRALESIONAL
     Route: 026
     Dates: start: 20100316, end: 20100316
  3. ULTRAM [Concomitant]
  4. SIMVASTATIN [Concomitant]
  5. PREMARIN [Concomitant]
  6. EXTRA STRENGTH TYLENOL [Concomitant]

REACTIONS (7)
  - PAIN IN EXTREMITY [None]
  - OEDEMA PERIPHERAL [None]
  - ARTHRALGIA [None]
  - CONTUSION [None]
  - CONDITION AGGRAVATED [None]
  - LACERATION [None]
  - CERVICAL SPINAL STENOSIS [None]
